FAERS Safety Report 8913995 (Version 3)
Quarter: 2013Q2

REPORT INFORMATION
  Report Type: Spontaneous
  Country: US (occurrence: US)
  Receive Date: 20121119
  Receipt Date: 20130508
  Transmission Date: 20140414
  Serious: No
  Sender: FDA-Public Use
  Company Number: US-009507513-1211USA003484

PATIENT
  Age: 22 Year
  Sex: Female
  Weight: 87.98 kg

DRUGS (2)
  1. IMPLANON [Suspect]
     Indication: CONTRACEPTION
     Dosage: 68 MG/EVERY THREE YEARS
     Route: 059
     Dates: start: 20111104, end: 20130306
  2. CELEXA [Concomitant]

REACTIONS (2)
  - Fungal infection [Not Recovered/Not Resolved]
  - Metrorrhagia [Unknown]
